FAERS Safety Report 25483740 (Version 1)
Quarter: 2025Q2

REPORT INFORMATION
  Report Type: Spontaneous
  Country: US (occurrence: US)
  Receive Date: 20250626
  Receipt Date: 20250626
  Transmission Date: 20250716
  Serious: No
  Sender: UPSHER SMITH LABORATORIES
  Company Number: US-UPSHER-SMITH LABORATORIES, LLC-2024USL00408

PATIENT
  Sex: Male

DRUGS (2)
  1. VIGADRONE [Suspect]
     Active Substance: VIGABATRIN
     Indication: Epilepsy
     Dates: start: 20231220
  2. VIGADRONE [Suspect]
     Active Substance: VIGABATRIN

REACTIONS (2)
  - Vomiting [Unknown]
  - Nystagmus [Unknown]
